FAERS Safety Report 13970230 (Version 1)
Quarter: 2017Q3

REPORT INFORMATION
  Report Type: Spontaneous
  Country: US (occurrence: US)
  Receive Date: 20170914
  Receipt Date: 20170914
  Transmission Date: 20171128
  Serious: No
  Sender: FDA-Public Use
  Company Number: US-ASTELLAS-2017US013829

PATIENT
  Age: 80 Year
  Sex: Male

DRUGS (1)
  1. XTANDI [Suspect]
     Active Substance: ENZALUTAMIDE
     Indication: HORMONE-REFRACTORY PROSTATE CANCER
     Route: 065
     Dates: start: 20170304

REACTIONS (10)
  - Feeling jittery [Unknown]
  - Abdominal discomfort [Unknown]
  - Somnolence [Unknown]
  - Memory impairment [Unknown]
  - Tremor [Unknown]
  - Hypoglycaemia [Unknown]
  - Initial insomnia [Unknown]
  - Somnolence [Unknown]
  - Sleep disorder [Unknown]
  - Fatigue [Unknown]

NARRATIVE: CASE EVENT DATE: 201703
